FAERS Safety Report 10063394 (Version 3)
Quarter: 2014Q2

REPORT INFORMATION
  Report Type: Spontaneous
  Country: US (occurrence: US)
  Receive Date: 20140407
  Receipt Date: 20140411
  Transmission Date: 20141212
  Serious: Yes (Life-Threatening, Hospitalization)
  Sender: FDA-Public Use
  Company Number: US-LUNDBECK-DKLU1086393

PATIENT
  Age: 5 Year
  Sex: Female
  Weight: 22 kg

DRUGS (5)
  1. ONFI [Suspect]
     Indication: EPILEPSY
     Dates: start: 20121030, end: 20121115
  2. ONFI [Suspect]
  3. ONFI [Suspect]
  4. ONFI [Suspect]
  5. DEPAKOTE [Suspect]
     Indication: EPILEPSY

REACTIONS (5)
  - Hypothermia [Recovered/Resolved]
  - Encephalopathy [Recovering/Resolving]
  - Bradycardia [Recovered/Resolved]
  - Fatigue [Recovered/Resolved]
  - Sedation [Unknown]
